FAERS Safety Report 7714752-6 (Version None)
Quarter: 2011Q3

REPORT INFORMATION
  Report Type: 
  Country: None (occurrence: None)
  Receive Date: 20110808
  Receipt Date: 20110505
  Transmission Date: 20111222
  Serious: No
  Sender: FDA-Public Use
  Company Number: 2011000069

PATIENT
  Age: 8 Year
  Sex: Female

DRUGS (2)
  1. ULESFIA [Suspect]
     Indication: LICE INFESTATION
     Dosage: PRN, TOPICAL ; PRN, TOPICAL
     Route: 061
     Dates: start: 20110401, end: 20110601
  2. ULESFIA [Suspect]
     Indication: LICE INFESTATION
     Dosage: PRN, TOPICAL ; PRN, TOPICAL
     Route: 061
     Dates: start: 20110201, end: 20110301

REACTIONS (1)
  - DRUG INEFFECTIVE [None]
